FAERS Safety Report 25674214 (Version 2)
Quarter: 2025Q3

REPORT INFORMATION
  Report Type: Report from Study
  Country: US (occurrence: US)
  Receive Date: 20250813
  Receipt Date: 20250915
  Transmission Date: 20251021
  Serious: Yes (Other)
  Sender: ABBVIE
  Company Number: US-ABBVIE-6250597

PATIENT
  Age: 39 Year
  Sex: Female
  Weight: 82 kg

DRUGS (11)
  1. SKYRIZI [Suspect]
     Active Substance: RISANKIZUMAB-RZAA
     Indication: Psoriatic arthropathy
     Route: 058
     Dates: start: 20250101
  2. SKYRIZI [Suspect]
     Active Substance: RISANKIZUMAB-RZAA
     Indication: Psoriasis
     Route: 058
     Dates: start: 20241108, end: 20241108
  3. SKYRIZI [Suspect]
     Active Substance: RISANKIZUMAB-RZAA
     Route: 058
     Dates: start: 20241204, end: 20241204
  4. SKYRIZI [Suspect]
     Active Substance: RISANKIZUMAB-RZAA
     Route: 058
     Dates: start: 202411
  5. SKYRIZI [Suspect]
     Active Substance: RISANKIZUMAB-RZAA
     Dosage: STRENGTH: 150MG/ML
     Route: 058
     Dates: start: 20250729
  6. LEVOTHYROXINE [Concomitant]
     Active Substance: LEVOTHYROXINE
     Indication: Thyroid disorder
     Route: 048
  7. WELLBUTRIN [Concomitant]
     Active Substance: BUPROPION HYDROCHLORIDE
     Indication: Depression
     Route: 048
  8. Vanspar [Concomitant]
     Indication: Anxiety
     Route: 048
  9. IRON [Concomitant]
     Active Substance: IRON
     Indication: Anaemia
     Route: 048
  10. VITAMINS [Concomitant]
     Active Substance: VITAMINS
     Indication: Product used for unknown indication
     Route: 048
  11. SYSTANE (HYPROMELLOSE 2910 (4000 MPA.S)) [Concomitant]
     Active Substance: HYPROMELLOSE 2910 (4000 MPA.S)
     Indication: Dry eye
     Route: 047

REACTIONS (13)
  - Loss of personal independence in daily activities [Recovering/Resolving]
  - Constipation [Unknown]
  - Anhidrosis [Not Recovered/Not Resolved]
  - Contusion [Unknown]
  - Psoriatic arthropathy [Recovered/Resolved]
  - Grip strength decreased [Recovered/Resolved]
  - Pain [Not Recovered/Not Resolved]
  - Mobility decreased [Recovering/Resolving]
  - Injection site papule [Unknown]
  - Injection site pruritus [Unknown]
  - Injection site erythema [Unknown]
  - General physical condition abnormal [Unknown]
  - Sensitive skin [Unknown]

NARRATIVE: CASE EVENT DATE: 20250101
